FAERS Safety Report 5663651-2 (Version None)
Quarter: 2008Q1

REPORT INFORMATION
  Report Type: 
  Country: None (occurrence: None)
  Receive Date: 20080307
  Receipt Date: 20080227
  Transmission Date: 20080703
  Serious: Yes (Other)
  Sender: FDA-Public Use
  Company Number: JPI-P-002878

PATIENT
  Age: 33 Year
  Sex: Male

DRUGS (6)
  1. LUVOX CR [Suspect]
     Indication: SCHIZOPHRENIA
     Dosage: 50 MG (50 MG, 1 IN 1 D),ORAL
     Route: 048
     Dates: start: 20070105, end: 20070124
  2. RISPERIDONE [Suspect]
     Indication: SCHIZOPHRENIA
     Dosage: SEE IMAGE
     Route: 048
     Dates: start: 20060209, end: 20060329
  3. RISPERIDONE [Suspect]
     Indication: SCHIZOPHRENIA
     Dosage: SEE IMAGE
     Route: 048
     Dates: start: 20060330, end: 20060713
  4. RISPERIDONE [Suspect]
     Indication: SCHIZOPHRENIA
     Dosage: SEE IMAGE
     Route: 048
     Dates: start: 20060714, end: 20070124
  5. RISPERIDONE [Suspect]
     Indication: SCHIZOPHRENIA
     Dosage: SEE IMAGE
     Route: 048
     Dates: start: 20070125, end: 20070201
  6. RISPERIDONE [Suspect]
     Indication: SCHIZOPHRENIA
     Dosage: SEE IMAGE
     Route: 048
     Dates: start: 20070118, end: 20070208

REACTIONS (8)
  - BLEPHAROSPASM [None]
  - DRUG INTERACTION [None]
  - EJACULATION FAILURE [None]
  - EYE MOVEMENT DISORDER [None]
  - LIBIDO DECREASED [None]
  - MEIGE'S SYNDROME [None]
  - SOMNOLENCE [None]
  - TREMOR [None]
